FAERS Safety Report 21056043 (Version 1)
Quarter: 2022Q3

REPORT INFORMATION
  Report Type: Spontaneous
  Country: US (occurrence: US)
  Receive Date: 20220708
  Receipt Date: 20220708
  Transmission Date: 20221027
  Serious: Yes (Hospitalization)
  Sender: FDA-Public Use
  Company Number: US-BRISTOL-MYERS SQUIBB COMPANY-2022-065333

PATIENT
  Age: 73 Year
  Sex: Male
  Weight: 121.10 kg

DRUGS (1)
  1. THALIDOMIDE [Suspect]
     Active Substance: THALIDOMIDE
     Indication: Myelofibrosis
     Dosage: THALOMID 100 MG ORAL DAILY
     Route: 048
     Dates: start: 20190628

REACTIONS (2)
  - Heart rate increased [Recovered/Resolved with Sequelae]
  - Intentional product use issue [Unknown]

NARRATIVE: CASE EVENT DATE: 20220623
